FAERS Safety Report 22807008 (Version 2)
Quarter: 2023Q4

REPORT INFORMATION
  Report Type: Spontaneous
  Country: US (occurrence: US)
  Receive Date: 20230810
  Receipt Date: 20231010
  Transmission Date: 20240110
  Serious: Yes (Other)
  Sender: FDA-Public Use
  Company Number: US-002147023-NVSC2023US173818

PATIENT

DRUGS (1)
  1. KESIMPTA [Suspect]
     Active Substance: OFATUMUMAB
     Indication: Relapsing multiple sclerosis
     Dosage: 20 MG, OTHER (LOADING DOSE THEN ONE 20 MG SQ INJECTION EVERY 4 WEEKS) (RECEIVED FOR 2 YRS)
     Route: 058

REACTIONS (1)
  - Basal cell carcinoma [Unknown]
